FAERS Safety Report 4717392-6 (Version None)
Quarter: 2005Q3

REPORT INFORMATION
  Report Type: 
  Country: None (occurrence: None)
  Receive Date: 20050715
  Receipt Date: 20050705
  Transmission Date: 20060218
  Serious: Yes (Death)
  Sender: FDA-Public Use
  Company Number: 2005097232

PATIENT
  Sex: Female

DRUGS (3)
  1. CELEBREX [Suspect]
     Indication: ILL-DEFINED DISORDER
     Dates: start: 20000401, end: 20010101
  2. VALDECOXIB [Suspect]
     Indication: ILL-DEFINED DISORDER
     Dates: start: 20030401, end: 20041001
  3. VIOXX [Suspect]
     Indication: ILL-DEFINED DISORDER
     Dates: start: 19991101, end: 20000101

REACTIONS (1)
  - CARDIAC ARREST [None]
